FAERS Safety Report 16285570 (Version 1)
Quarter: 2019Q2

REPORT INFORMATION
  Report Type: Spontaneous
  Country: US (occurrence: US)
  Receive Date: 20190506
  Receipt Date: 20190506
  Transmission Date: 20190711
  Serious: Yes (Life-Threatening, Hospitalization, Other)
  Sender: FDA-Public Use
  Company Number: None

PATIENT
  Age: 55 Year
  Sex: Female
  Weight: 84.4 kg

DRUGS (4)
  1. PEMBROLIZUMAB. [Suspect]
     Active Substance: PEMBROLIZUMAB
     Indication: METASTATIC RENAL CELL CARCINOMA
     Dates: start: 20190416
  2. PEMBROLIZUMAB 200 MG [Concomitant]
     Active Substance: PEMBROLIZUMAB
     Dates: start: 20190416
  3. AXITINIB [Suspect]
     Active Substance: AXITINIB
     Indication: METASTATIC RENAL CELL CARCINOMA
     Dates: start: 20190416, end: 20190503
  4. AXITINIB 5 MG [Concomitant]
     Active Substance: AXITINIB
     Dates: start: 20190416, end: 20190503

REACTIONS (6)
  - Fall [None]
  - Seizure [None]
  - Dizziness [None]
  - Posterior reversible encephalopathy syndrome [None]
  - Brain oedema [None]
  - Cerebral ischaemia [None]

NARRATIVE: CASE EVENT DATE: 20190503
